FAERS Safety Report 22197680 (Version 2)
Quarter: 2023Q2

REPORT INFORMATION
  Report Type: Spontaneous
  Country: US (occurrence: None)
  Receive Date: 20230411
  Receipt Date: 20230530
  Transmission Date: 20230721
  Serious: Yes (Other)
  Sender: FDA-Public Use
  Company Number: 2023A079359

PATIENT

DRUGS (2)
  1. IMFINZI [Suspect]
     Active Substance: DURVALUMAB
     Route: 042
  2. IMJUDO [Suspect]
     Active Substance: TREMELIMUMAB-ACTL
     Route: 042

REACTIONS (2)
  - Disease progression [Unknown]
  - Alpha 1 foetoprotein increased [Unknown]
